FAERS Safety Report 5478666-7 (Version None)
Quarter: 2007Q4

REPORT INFORMATION
  Report Type: 
  Country: None (occurrence: None)
  Receive Date: 20071005
  Receipt Date: 20070928
  Transmission Date: 20080405
  Serious: Yes (Hospitalization)
  Sender: FDA-Public Use
  Company Number: US-BAXTER-2007BH008024

PATIENT
  Age: 43 Year
  Sex: Female
  Weight: 105 kg

DRUGS (7)
  1. GAMMAGARD LIQUID [Suspect]
     Indication: POLYMYOSITIS
     Route: 042
     Dates: start: 20070728, end: 20070729
  2. GAMMAGARD LIQUID [Suspect]
     Indication: INTENTIONAL DRUG MISUSE
     Route: 042
     Dates: start: 20070728, end: 20070729
  3. GAMMAGARD LIQUID [Suspect]
     Route: 042
     Dates: start: 20070728, end: 20070729
  4. GAMMAGARD LIQUID [Suspect]
     Route: 042
     Dates: start: 20070728, end: 20070729
  5. TYLENOL (CAPLET) [Concomitant]
     Indication: DRUG USE FOR UNKNOWN INDICATION
     Route: 048
     Dates: start: 20070728
  6. BENADRYL [Concomitant]
     Indication: DRUG USE FOR UNKNOWN INDICATION
     Route: 048
     Dates: start: 20070728
  7. HEPARIN [Concomitant]
     Indication: DRUG USE FOR UNKNOWN INDICATION
     Route: 058
     Dates: start: 20070728

REACTIONS (2)
  - HEADACHE [None]
  - PNEUMONIA [None]
